FAERS Safety Report 4859936-X (Version None)
Quarter: 2005Q4

REPORT INFORMATION
  Report Type: 
  Country: None (occurrence: None)
  Receive Date: 20051215
  Receipt Date: 20051130
  Transmission Date: 20060501
  Serious: Yes (Hospitalization, Disabling)
  Sender: FDA-Public Use
  Company Number: GXKR2005DEC02081

PATIENT
  Age: 50 Year
  Sex: Female
  Weight: 80 kg

DRUGS (2)
  1. CO-TRIMOXAZOLE (NGX) (SULFAMETHOXAZOLE, TRIMETHOPRIM) UNKNOWN [Suspect]
     Indication: URINARY TRACT INFECTION
  2. TRIAMTERENE (TRIAMTERENE) [Suspect]
     Indication: OEDEMA PERIPHERAL

REACTIONS (7)
  - ANAEMIA MACROCYTIC [None]
  - ANAEMIA MEGALOBLASTIC [None]
  - FOLATE DEFICIENCY [None]
  - HYPOCHROMIC ANAEMIA [None]
  - LEUKOPENIA [None]
  - MARROW HYPERPLASIA [None]
  - THROMBOCYTOPENIA [None]
